FAERS Safety Report 12535703 (Version 1)
Quarter: 2016Q3

REPORT INFORMATION
  Report Type: Spontaneous
  Country: FR (occurrence: FR)
  Receive Date: 20160707
  Receipt Date: 20160707
  Transmission Date: 20161109
  Serious: Yes (Hospitalization)
  Sender: FDA-Public Use
  Company Number: FR-009507513-1606FRA014833

PATIENT
  Age: 73 Year
  Sex: Female

DRUGS (10)
  1. SOTALEX [Concomitant]
     Active Substance: SOTALOL
  2. ESOMEPRAZOLE [Suspect]
     Active Substance: ESOMEPRAZOLE
     Dosage: 60 MG, QD
     Route: 048
     Dates: end: 20160607
  3. ALDACTONE [Suspect]
     Active Substance: SPIRONOLACTONE
     Dosage: 25 MG, QD
     Route: 048
     Dates: end: 20160607
  4. COZAAR [Suspect]
     Active Substance: LOSARTAN POTASSIUM
     Dosage: 50 MG, BID
     Route: 048
     Dates: end: 20160607
  5. TEMESTA [Suspect]
     Active Substance: LORAZEPAM
     Dosage: 1 MG, 5 TIMES PER DAY
     Route: 048
     Dates: end: 20160607
  6. COZAAR [Suspect]
     Active Substance: LOSARTAN POTASSIUM
     Dosage: 150 MG, UNK
     Route: 048
  7. LASILIX [Suspect]
     Active Substance: FUROSEMIDE
     Dosage: 20 MG, 1 PER DAY
     Route: 048
     Dates: end: 20160607
  8. ZOPICLONE [Concomitant]
     Active Substance: ZOPICLONE
  9. DIFFU-K [Concomitant]
     Active Substance: POTASSIUM CHLORIDE
  10. TAHOR [Concomitant]
     Active Substance: ATORVASTATIN CALCIUM

REACTIONS (2)
  - Hyponatraemia [Recovered/Resolved]
  - Status epilepticus [Recovered/Resolved]

NARRATIVE: CASE EVENT DATE: 20160606
